FAERS Safety Report 5142714-4 (Version None)
Quarter: 2006Q4

REPORT INFORMATION
  Report Type: 
  Country: None (occurrence: None)
  Receive Date: 20061027
  Receipt Date: 20061009
  Transmission Date: 20070319
  Serious: Yes (Hospitalization, Other)
  Sender: FDA-Public Use
  Company Number: US200610001811

PATIENT
  Age: 32 Year
  Sex: Female
  Weight: 88 kg

DRUGS (1)
  1. ZYPREXA [Suspect]
     Dates: start: 19880101, end: 20030101

REACTIONS (7)
  - CARDIAC DISORDER [None]
  - COMA [None]
  - CONDITION AGGRAVATED [None]
  - DIABETES MELLITUS NON-INSULIN-DEPENDENT [None]
  - DIABETIC COMA [None]
  - HEART VALVE REPLACEMENT [None]
  - WEIGHT INCREASED [None]
